FAERS Safety Report 24636828 (Version 1)
Quarter: 2024Q4

REPORT INFORMATION
  Report Type: Spontaneous
  Country: US (occurrence: US)
  Receive Date: 20241119
  Receipt Date: 20241119
  Transmission Date: 20250115
  Serious: Yes (Other)
  Sender: MYLAN
  Company Number: US-MYLANLABS-2024M1101821

PATIENT
  Sex: Female

DRUGS (1)
  1. MEDROXYPROGESTERONE [Suspect]
     Active Substance: MEDROXYPROGESTERONE
     Indication: Contraception
     Dosage: 150 MILLIGRAM, Q3MONTHS (EVERY THREE MONTHS)
     Route: 030
     Dates: start: 201510

REACTIONS (1)
  - Intracranial meningioma malignant [Unknown]

NARRATIVE: CASE EVENT DATE: 20240101
